FAERS Safety Report 13453803 (Version 1)
Quarter: 2017Q2

REPORT INFORMATION
  Report Type: Spontaneous
  Country: US (occurrence: US)
  Receive Date: 20170418
  Receipt Date: 20170418
  Transmission Date: 20170830
  Serious: No
  Sender: FDA-Public Use
  Company Number: US-ALLERGAN-1652350US

PATIENT
  Age: 76 Year
  Sex: Female

DRUGS (1)
  1. LUMIGAN [Suspect]
     Active Substance: BIMATOPROST
     Indication: DRY AGE-RELATED MACULAR DEGENERATION
     Dosage: 2 GTT, QD
     Route: 047
     Dates: end: 20160327

REACTIONS (2)
  - Off label use [Unknown]
  - Photopsia [Not Recovered/Not Resolved]
